FAERS Safety Report 5738717-9 (Version None)
Quarter: 2008Q2

REPORT INFORMATION
  Report Type: 
  Country: None (occurrence: None)
  Receive Date: 20080515
  Receipt Date: 20080509
  Transmission Date: 20081010
  Serious: Yes (Death, Life-Threatening, Other)
  Sender: FDA-Public Use
  Company Number: PHEH2006US05809

PATIENT
  Age: 71 Year
  Sex: Female
  Weight: 68.027 kg

DRUGS (6)
  1. ZOMETA [Suspect]
     Indication: NEOPLASM MALIGNANT
  2. ANTINEOPLASTIC AGENTS [Concomitant]
  3. NORMODYNE [Concomitant]
  4. CELEBREX [Concomitant]
  5. NEXIUM [Concomitant]
  6. PROCRIT [Concomitant]

REACTIONS (33)
  - ATELECTASIS [None]
  - BLOOD POTASSIUM INCREASED [None]
  - BONE DISORDER [None]
  - BONE GRAFT [None]
  - CARDIAC FAILURE CONGESTIVE [None]
  - CHEST TUBE INSERTION [None]
  - DECUBITUS ULCER [None]
  - DENTAL CARIES [None]
  - DEPRESSED LEVEL OF CONSCIOUSNESS [None]
  - ERYTHEMA [None]
  - FISTULA [None]
  - HYPERCAPNIA [None]
  - HYPOKALAEMIA [None]
  - HYPONATRAEMIA [None]
  - JAW DISORDER [None]
  - MALIGNANT NEOPLASM PROGRESSION [None]
  - MALIGNANT PLEURAL EFFUSION [None]
  - NAUSEA [None]
  - ORAL INFECTION [None]
  - OSTEONECROSIS [None]
  - PERICARDIAL EFFUSION [None]
  - PERICARDIAL EXCISION [None]
  - PLEURAL EFFUSION [None]
  - PRIMARY SEQUESTRUM [None]
  - PURULENT DISCHARGE [None]
  - RESPIRATORY DISTRESS [None]
  - STOMATITIS [None]
  - SWELLING [None]
  - THROMBOSIS [None]
  - TOOTH ABSCESS [None]
  - TOOTH EXTRACTION [None]
  - TOOTHACHE [None]
  - UNRESPONSIVE TO STIMULI [None]
